FAERS Safety Report 12887770 (Version 1)
Quarter: 2016Q4

REPORT INFORMATION
  Report Type: Other
  Country: GB (occurrence: AU)
  Receive Date: 20161027
  Receipt Date: 20161027
  Transmission Date: 20170207
  Serious: Yes (Hospitalization, Other)
  Sender: FDA-Public Use
  Company Number: AU-INTERNATIONAL MEDICATION SYSTEMS, LIMITED-1058927

PATIENT
  Age: 53 Year
  Sex: Male

DRUGS (9)
  1. DAPTOMYCIN. [Concomitant]
     Active Substance: DAPTOMYCIN
  2. HYDROXYCARBAMIDE [Concomitant]
     Active Substance: HYDROXYUREA
  3. VALACICLOVIR [Concomitant]
     Active Substance: VALACYCLOVIR HYDROCHLORIDE
  4. PANTOPRAZOLE SODIUM. [Concomitant]
     Active Substance: PANTOPRAZOLE SODIUM
  5. IDARUBICIN HYDROCHLORIDE. [Concomitant]
     Active Substance: IDARUBICIN HYDROCHLORIDE
  6. CYTARABINE. [Concomitant]
     Active Substance: CYTARABINE
  7. AMIODARONE [Suspect]
     Active Substance: AMIODARONE
  8. DASATINIB [Concomitant]
     Active Substance: DASATINIB
  9. TAZOCIN [Concomitant]
     Active Substance: PIPERACILLIN SODIUM\TAZOBACTAM SODIUM

REACTIONS (2)
  - Acute kidney injury [None]
  - Nephropathy toxic [None]
